FAERS Safety Report 17668990 (Version 1)
Quarter: 2020Q2

REPORT INFORMATION
  Report Type: Spontaneous
  Country: CN (occurrence: CN)
  Receive Date: 20200415
  Receipt Date: 20200415
  Transmission Date: 20200713
  Serious: Yes (Hospitalization, Disabling, Other)
  Sender: FDA-Public Use
  Company Number: CN-SA-2020SA095366

PATIENT
  Age: 53 Year
  Sex: Male
  Weight: 66 kg

DRUGS (8)
  1. NIMODIPINE. [Suspect]
     Active Substance: NIMODIPINE
     Indication: CEREBRAL ARTERY OCCLUSION
     Dosage: 50 ML, QD (PUMP INJECTION)
     Dates: start: 20200308, end: 20200320
  2. FASUDIL HYDROCHLORIDE [Suspect]
     Active Substance: FASUDIL HYDROCHLORIDE
     Indication: CEREBRAL ARTERY OCCLUSION
     Dosage: 30 MG, QD
     Route: 041
     Dates: start: 20200308, end: 20200317
  3. LOSEC [OMEPRAZOLE SODIUM] [Concomitant]
     Active Substance: OMEPRAZOLE SODIUM
     Indication: CEREBRAL ARTERY OCCLUSION
     Dosage: 40 MG, BID
     Route: 041
     Dates: start: 20200313, end: 20200402
  4. NALOXONE HYDROCHLORIDE. [Concomitant]
     Active Substance: NALOXONE HYDROCHLORIDE
     Indication: CEREBRAL ARTERY OCCLUSION
     Dosage: 10 MG, QD
     Route: 041
     Dates: start: 20200309, end: 20200315
  5. PLAVIX [Suspect]
     Active Substance: CLOPIDOGREL BISULFATE
     Indication: CEREBRAL ARTERY OCCLUSION
     Dosage: 75 MG, QD
     Route: 048
     Dates: start: 20200309, end: 20200315
  6. FUROSEMIDE. [Suspect]
     Active Substance: FUROSEMIDE
     Indication: CEREBRAL ARTERY OCCLUSION
     Dosage: 20 MG, BID
     Route: 042
     Dates: start: 20200308, end: 20200315
  7. ASPIRIN [ACETYLSALICYLIC ACID] [Concomitant]
     Active Substance: ASPIRIN
     Indication: CEREBRAL ARTERY OCCLUSION
     Dosage: 0.1 G, QD
     Route: 048
     Dates: start: 20200309, end: 20200315
  8. CIMETIDINE [Concomitant]
     Active Substance: CIMETIDINE
     Indication: CEREBRAL ARTERY OCCLUSION
     Dosage: 0.6 G, QD
     Route: 041
     Dates: start: 20200308, end: 20200313

REACTIONS (5)
  - Hepatic function abnormal [Recovering/Resolving]
  - Blood pressure decreased [Recovering/Resolving]
  - Respiratory failure [Recovering/Resolving]
  - Renal impairment [Recovering/Resolving]
  - Electrolyte imbalance [Recovering/Resolving]

NARRATIVE: CASE EVENT DATE: 20200314
